FAERS Safety Report 11096572 (Version 2)
Quarter: 2023Q2

REPORT INFORMATION
  Report Type: Spontaneous
  Country: FR (occurrence: FR)
  Receive Date: 20150507
  Receipt Date: 20230522
  Transmission Date: 20230722
  Serious: Yes (Hospitalization, Other)
  Sender: FDA-Public Use
  Company Number: FR-AUROBINDO-AUR-APL-2015-03140

PATIENT
  Age: 16 Year
  Sex: Female

DRUGS (5)
  1. RISPERIDONE [Interacting]
     Active Substance: RISPERIDONE
     Indication: Psychotic disorder
     Dosage: 1.5 MG, IN SINGLE DOSE PER DAY
     Route: 048
  2. LOXAPINE [Interacting]
     Active Substance: LOXAPINE
     Indication: Psychotic disorder
     Dosage: 45 MILLIGRAM, 3 TIMES A DAY
     Route: 048
  3. CARBAMAZEPINE [Interacting]
     Active Substance: CARBAMAZEPINE
     Indication: Product used for unknown indication
     Dosage: 200 MILLIGRAM, DAILY
     Route: 065
  4. CARBAMAZEPINE [Interacting]
     Active Substance: CARBAMAZEPINE
     Dosage: 400 MILLIGRAM
     Route: 065
  5. CARBAMAZEPINE [Interacting]
     Active Substance: CARBAMAZEPINE
     Dosage: 800 MG, (20 MG/KG/DAY)
     Route: 065

REACTIONS (6)
  - Asthenia [Recovered/Resolved]
  - Vision blurred [Recovered/Resolved]
  - Drug interaction [Recovered/Resolved]
  - Overdose [Recovered/Resolved]
  - General physical health deterioration [Recovered/Resolved]
  - Drug level increased [Recovered/Resolved]
